FAERS Safety Report 13274324 (Version 3)
Quarter: 2017Q1

REPORT INFORMATION
  Report Type: Spontaneous
  Country: RU (occurrence: RU)
  Receive Date: 20170227
  Receipt Date: 20170321
  Transmission Date: 20170428
  Serious: Yes (Life-Threatening, Other)
  Sender: FDA-Public Use
  Company Number: RU-SA-2017SA030975

PATIENT
  Age: 14 Year
  Sex: Female
  Weight: 49.5 kg

DRUGS (5)
  1. LANTUS [Suspect]
     Active Substance: INSULIN GLARGINE
     Indication: TYPE 1 DIABETES MELLITUS
     Route: 058
     Dates: start: 2015
  2. APIDRA [Suspect]
     Active Substance: INSULIN GLULISINE
     Indication: TYPE 1 DIABETES MELLITUS
     Dosage: DOSE:13 IU + 8 IU + 13 IU)
     Route: 058
     Dates: start: 201610
  3. VIGANTOL [Concomitant]
     Active Substance: CHOLECALCIFEROL
     Route: 048
     Dates: start: 2015
  4. URSOSAN [Concomitant]
     Indication: HEPATIC STEATOSIS
     Route: 048
     Dates: start: 201610
  5. URSOSAN [Concomitant]
     Indication: HEPATIC STEATOSIS
     Route: 048
     Dates: start: 201701, end: 201702

REACTIONS (1)
  - Neutropenia [Unknown]

NARRATIVE: CASE EVENT DATE: 201701
